APPROVED DRUG PRODUCT: FONDAPARINUX SODIUM
Active Ingredient: FONDAPARINUX SODIUM
Strength: 2.5MG/0.5ML
Dosage Form/Route: SOLUTION;SUBCUTANEOUS
Application: A206918 | Product #001 | TE Code: AP
Applicant: EUGIA PHARMA SPECIALITIES LTD
Approved: Dec 26, 2017 | RLD: No | RS: No | Type: RX